FAERS Safety Report 9474239 (Version 1)
Quarter: 2013Q3

REPORT INFORMATION
  Report Type: Spontaneous
  Country: US (occurrence: US)
  Receive Date: 20130823
  Receipt Date: 20130823
  Transmission Date: 20140515
  Serious: Yes (Life-Threatening, Hospitalization)
  Sender: FDA-Public Use
  Company Number: US-BRISTOL-MYERS SQUIBB COMPANY-19182302

PATIENT
  Age: 54 Year
  Sex: Female
  Weight: 55.78 kg

DRUGS (1)
  1. ABILIFY [Suspect]
     Indication: SCHIZOAFFECTIVE DISORDER BIPOLAR TYPE
     Dosage: 2008 - UNK: 30MG;?NOV2010: 51MG, 3/D;
     Dates: start: 2008

REACTIONS (4)
  - Diabetic coma [Unknown]
  - Hypotension [Unknown]
  - Gastrointestinal infection [Unknown]
  - Chest pain [Unknown]
